FAERS Safety Report 23447516 (Version 3)
Quarter: 2024Q1

REPORT INFORMATION
  Report Type: Spontaneous
  Country: US (occurrence: US)
  Receive Date: 20240126
  Receipt Date: 20240214
  Transmission Date: 20240410
  Serious: Yes (Other)
  Sender: FDA-Public Use
  Company Number: US-Eisai-EC-2024-156615

PATIENT
  Age: 70 Year
  Sex: Male
  Weight: 102 kg

DRUGS (2)
  1. LECANEMAB [Suspect]
     Active Substance: LECANEMAB
     Indication: Product used for unknown indication
     Dosage: UNKNOWN DOSE AND FREQUENCY
     Route: 042
     Dates: start: 20231110, end: 20240112
  2. INSULIN NOS [Concomitant]
     Active Substance: INSULIN NOS
     Indication: Diabetes mellitus
     Dosage: UNITS AND FREQUENCY UNKNOWN

REACTIONS (4)
  - Amyloid related imaging abnormality-oedema/effusion [Recovering/Resolving]
  - Fall [Unknown]
  - Headache [Unknown]
  - Confusional state [Unknown]

NARRATIVE: CASE EVENT DATE: 20231201
